FAERS Safety Report 24545939 (Version 2)
Quarter: 2025Q1

REPORT INFORMATION
  Report Type: Spontaneous
  Country: DE (occurrence: DE)
  Receive Date: 20241024
  Receipt Date: 20250306
  Transmission Date: 20250409
  Serious: Yes (Other)
  Sender: REGENERON
  Company Number: DE-BAYER-2024A142114

PATIENT
  Age: 92 Year
  Sex: Female

DRUGS (1)
  1. EYLEA HD [Suspect]
     Active Substance: AFLIBERCEPT
     Indication: Neovascular age-related macular degeneration
     Route: 031
     Dates: start: 20240507, end: 20240507

REACTIONS (9)
  - Corneal deposits [Recovered/Resolved]
  - Eye irritation [Unknown]
  - Vitritis [Unknown]
  - Visual impairment [Recovered/Resolved]
  - Visual acuity reduced [Unknown]
  - Vitreous opacities [Recovered/Resolved]
  - Anterior chamber cell [Recovered/Resolved]
  - Vitreal cells [Recovered/Resolved]
  - Vision blurred [Recovered/Resolved]

NARRATIVE: CASE EVENT DATE: 20240507
